FAERS Safety Report 25934107 (Version 1)
Quarter: 2025Q4

REPORT INFORMATION
  Report Type: Report from Study
  Country: US (occurrence: US)
  Receive Date: 20251017
  Receipt Date: 20251017
  Transmission Date: 20260118
  Serious: Yes (Other)
  Sender: TEVA
  Company Number: US-TEVA-VS-3382183

PATIENT

DRUGS (1)
  1. HYDROXYCHLOROQUINE [Suspect]
     Active Substance: HYDROXYCHLOROQUINE
     Indication: Pancreatic carcinoma metastatic
     Dosage: PO TWICE DAILY
     Route: 065

REACTIONS (2)
  - Acute kidney injury [Unknown]
  - Blood creatine phosphokinase increased [Unknown]
